FAERS Safety Report 12791396 (Version 4)
Quarter: 2018Q1

REPORT INFORMATION
  Report Type: Report from Study
  Country: BR (occurrence: BR)
  Receive Date: 20160929
  Receipt Date: 20180320
  Transmission Date: 20180508
  Serious: Yes (Other)
  Sender: FDA-Public Use
  Company Number: PHHY2016BR131939

PATIENT
  Age: 42 Year
  Sex: Female
  Weight: 96 kg

DRUGS (6)
  1. DIOVAN HCT [Suspect]
     Active Substance: HYDROCHLOROTHIAZIDE\VALSARTAN
     Dosage: 1 DF  (HYDROCHLOROTHIAZIDE 25 MG, VALSARTAN 320 MG), QD IN MAORNING
     Route: 048
     Dates: start: 201501
  2. DIOVAN HCT [Suspect]
     Active Substance: HYDROCHLOROTHIAZIDE\VALSARTAN
     Dosage: 1 DF  (HYDROCHLOROTHIAZIDE 25 MG, VALSARTAN 320 MG), BID
     Route: 065
  3. VASTAREL [Concomitant]
     Active Substance: TRIMETAZIDINE DIHYDROCHLORIDE
     Indication: INFARCTION
     Dosage: 1 DF, QD
     Route: 048
  4. DIOVAN HCT [Suspect]
     Active Substance: HYDROCHLOROTHIAZIDE\VALSARTAN
     Indication: HYPERTENSION
     Dosage: UNK
     Route: 065
     Dates: start: 2014
  5. DIOVAN HCT [Suspect]
     Active Substance: HYDROCHLOROTHIAZIDE\VALSARTAN
     Dosage: 1 DF  (HYDROCHLOROTHIAZIDE 25 MG, VALSARTAN 320 MG), QD
     Route: 048
     Dates: start: 201505
  6. CEPHALEXIN. [Suspect]
     Active Substance: CEPHALEXIN
     Indication: DERMATITIS ALLERGIC
     Dosage: UNK
     Route: 065
     Dates: start: 20160922

REACTIONS (9)
  - Swelling [Recovered/Resolved]
  - Dermatitis allergic [Recovered/Resolved]
  - Obesity [Unknown]
  - Labyrinthitis [Recovering/Resolving]
  - Dizziness [Recovering/Resolving]
  - Choking sensation [Recovered/Resolved]
  - Expired product administered [Unknown]
  - Myocardial infarction [Recovered/Resolved]
  - Drug hypersensitivity [Recovered/Resolved]

NARRATIVE: CASE EVENT DATE: 201505
